FAERS Safety Report 8658898 (Version 3)
Quarter: 2013Q2

REPORT INFORMATION
  Report Type: Spontaneous
  Country: US (occurrence: US)
  Receive Date: 20120710
  Receipt Date: 20130614
  Transmission Date: 20140414
  Serious: No
  Sender: FDA-Public Use
  Company Number: US-ASTRAZENECA-2012SE42791

PATIENT
  Age: 62 Year
  Sex: Male
  Weight: 70.3 kg

DRUGS (4)
  1. SYMBICORT PMDI [Suspect]
     Indication: ASTHMA
     Dosage: 160/4.5, 2 PUFFS BID
     Route: 055
  2. ALBUTEROL [Concomitant]
     Route: 055
  3. SPIRIVA [Concomitant]
     Route: 055
  4. SALINE THROUGH NEBULIZER [Concomitant]
     Route: 055

REACTIONS (5)
  - Dyspnoea [Unknown]
  - Choking [Unknown]
  - Cough [Unknown]
  - Drug dose omission [Unknown]
  - Device misuse [Unknown]
